FAERS Safety Report 8238894-4 (Version None)
Quarter: 2012Q1

REPORT INFORMATION
  Report Type: 
  Country: None (occurrence: None)
  Receive Date: 20120327
  Receipt Date: 20120320
  Transmission Date: 20120608
  Serious: Yes (Hospitalization)
  Sender: FDA-Public Use
  Company Number: US-ABBOTT-12P-163-0917007-00

PATIENT
  Sex: Female
  Weight: 51.302 kg

DRUGS (5)
  1. MERCAPTOPURINE [Concomitant]
     Indication: CROHN'S DISEASE
  2. OXYCONTIN [Concomitant]
     Indication: PAIN
  3. HUMIRA [Suspect]
     Dates: start: 20120106, end: 20120106
  4. PREDNISONE TAB [Concomitant]
     Indication: CROHN'S DISEASE
  5. HUMIRA [Suspect]
     Indication: CROHN'S DISEASE
     Dates: start: 20111223, end: 20111223

REACTIONS (10)
  - INFLUENZA [None]
  - BLOOD IRON DECREASED [None]
  - LOCALISED INFECTION [None]
  - RECTAL ABSCESS [None]
  - VOMITING [None]
  - ANORECTAL INFECTION [None]
  - DEHYDRATION [None]
  - GASTROINTESTINAL VIRAL INFECTION [None]
  - PELVIC FLUID COLLECTION [None]
  - PROCTALGIA [None]
